FAERS Safety Report 20768138 (Version 1)
Quarter: 2022Q2

REPORT INFORMATION
  Report Type: Spontaneous
  Country: FR (occurrence: FR)
  Receive Date: 20220429
  Receipt Date: 20220429
  Transmission Date: 20220721
  Serious: Yes (Other)
  Sender: FDA-Public Use
  Company Number: FR-BAYER-2022P001306

PATIENT
  Age: 72 Year
  Sex: Female

DRUGS (1)
  1. XARELTO [Suspect]
     Active Substance: RIVAROXABAN
     Indication: Knee arthroplasty
     Dosage: 10 MG QD
     Route: 048

REACTIONS (5)
  - Acne [Unknown]
  - Urticaria [Unknown]
  - Pruritus [Unknown]
  - Urticaria [Unknown]
  - Urticaria [Unknown]
